FAERS Safety Report 11205785 (Version 1)
Quarter: 2015Q2

REPORT INFORMATION
  Report Type: Spontaneous
  Country: GB (occurrence: GB)
  Receive Date: 20150622
  Receipt Date: 20150622
  Transmission Date: 20150821
  Serious: Yes (Other)
  Sender: FDA-Public Use
  Company Number: GB-DRREDDYS-GER/UKI/15/0048827

PATIENT
  Age: 21 Year
  Sex: Male

DRUGS (2)
  1. CLONAZEPAM. [Concomitant]
     Active Substance: CLONAZEPAM
     Indication: PRODUCT USED FOR UNKNOWN INDICATION
  2. OLANZAPINE. [Suspect]
     Active Substance: OLANZAPINE
     Indication: PSYCHOTIC DISORDER
     Dosage: AT NIGHT. REDUCED TO 10MG ONCE A DAY, AT NIGHT. FURTHER REDUCTION TO 5MG ONCE A DAY, AT NIGHT.
     Route: 048
     Dates: start: 20130725

REACTIONS (7)
  - Enuresis [Recovering/Resolving]
  - Quality of life decreased [Unknown]
  - Urinary retention [Recovering/Resolving]
  - Pollakiuria [Recovering/Resolving]
  - Dysuria [Recovering/Resolving]
  - Urinary incontinence [Recovering/Resolving]
  - Urine output decreased [Recovering/Resolving]

NARRATIVE: CASE EVENT DATE: 20141212
